FAERS Safety Report 17742459 (Version 2)
Quarter: 2020Q2

REPORT INFORMATION
  Report Type: Spontaneous
  Country: CR (occurrence: CR)
  Receive Date: 20200504
  Receipt Date: 20200616
  Transmission Date: 20200714
  Serious: Yes (Other)
  Sender: FDA-Public Use
  Company Number: CR-PFIZER INC-2020174396

PATIENT
  Age: 47 Year
  Sex: Female

DRUGS (1)
  1. SILDENAFIL CITRATE. [Suspect]
     Active Substance: SILDENAFIL CITRATE

REACTIONS (7)
  - Headache [Recovered/Resolved]
  - Maculopathy [Recovered/Resolved]
  - Visual acuity reduced [Recovered/Resolved]
  - Visual impairment [Recovered/Resolved]
  - Foveal reflex abnormal [Recovered/Resolved]
  - Visual field defect [Recovered/Resolved]
  - Vision blurred [Recovered/Resolved]
